FAERS Safety Report 5201277-5 (Version None)
Quarter: 2007Q1

REPORT INFORMATION
  Report Type: 
  Country: None (occurrence: None)
  Receive Date: 20070103
  Receipt Date: 20061219
  Transmission Date: 20070707
  Serious: Yes (Other)
  Sender: FDA-Public Use
  Company Number: 2006EU003364

PATIENT
  Age: 20 Year
  Sex: Female

DRUGS (3)
  1. TACROLIMUS (TACROLIMUS) FORMULATION UNKNOWN [Suspect]
     Indication: RENAL TRANSPLANT
     Dates: start: 20010101
  2. PREDNISONE [Suspect]
     Indication: RENAL TRANSPLANT
     Dates: start: 20010101
  3. MYCOPHENOLATE MOFETIL [Suspect]
     Indication: RENAL TRANSPLANT
     Dates: start: 20010101

REACTIONS (7)
  - BRAIN ABSCESS [None]
  - CONVULSION [None]
  - FOCAL GLOMERULOSCLEROSIS [None]
  - HEADACHE [None]
  - HYPONATRAEMIA [None]
  - NEUTROPENIA [None]
  - PNEUMONIA [None]
